FAERS Safety Report 7748127-0 (Version None)
Quarter: 2011Q3

REPORT INFORMATION
  Report Type: 
  Country: None (occurrence: None)
  Receive Date: 20110913
  Receipt Date: 20110907
  Transmission Date: 20111222
  Serious: Yes (Hospitalization)
  Sender: FDA-Public Use
  Company Number: DE-AMGEN-UK343407

PATIENT
  Age: 49 Year
  Sex: Male

DRUGS (7)
  1. CALCIUM ACETATE [Concomitant]
     Dosage: 580 MG, TID
  2. OMEPRAZOLE [Concomitant]
     Dosage: 20 MG, UNK
  3. CINACALCET HYDROCHLORIDE [Suspect]
     Indication: HYPERPARATHYROIDISM SECONDARY
     Dosage: UNK UNK, BID
     Route: 048
     Dates: start: 20061126, end: 20090416
  4. BLINDED PLACEBO [Suspect]
     Indication: HYPERPARATHYROIDISM SECONDARY
     Dosage: UNK UNK, BID
     Route: 048
     Dates: start: 20061126, end: 20090416
  5. ANTI PHOSPHAT [Concomitant]
     Dosage: 600 MG, TID
  6. SIMVASTATIN [Concomitant]
     Dosage: 10 MG, UNK
  7. LEVOTHYROXINE SODIUM [Concomitant]
     Dosage: 150 MUG, UNK

REACTIONS (1)
  - HYPERPARATHYROIDISM [None]
